FAERS Safety Report 20359494 (Version 2)
Quarter: 2022Q1

REPORT INFORMATION
  Report Type: Spontaneous
  Country: IT (occurrence: IT)
  Receive Date: 20220121
  Receipt Date: 20220316
  Transmission Date: 20220424
  Serious: Yes (Other)
  Sender: FDA-Public Use
  Company Number: IT-SUN PHARMACEUTICAL INDUSTRIES LTD-2022RR-324333

PATIENT
  Age: 72 Year
  Sex: Male

DRUGS (1)
  1. SONIDEGIB [Suspect]
     Active Substance: SONIDEGIB
     Indication: Basal cell carcinoma
     Dosage: 200 MILLIGRAM, DAILY, 200 MG, 1 CP PER DAY
     Route: 048

REACTIONS (3)
  - Blood creatine phosphokinase increased [Unknown]
  - Dysgeusia [Recovered/Resolved]
  - Muscle spasms [Recovered/Resolved]
